FAERS Safety Report 20656079 (Version 1)
Quarter: 2022Q1

REPORT INFORMATION
  Report Type: Report from Study
  Country: US (occurrence: US)
  Receive Date: 20220330
  Receipt Date: 20220330
  Transmission Date: 20220423
  Serious: Yes (Hospitalization)
  Sender: FDA-Public Use
  Company Number: US-ABBVIE-22K-163-4338744-00

PATIENT
  Sex: Female

DRUGS (2)
  1. VENCLEXTA [Suspect]
     Active Substance: VENETOCLAX
     Indication: Acute myeloid leukaemia
     Route: 048
     Dates: start: 202108
  2. VENCLEXTA [Suspect]
     Active Substance: VENETOCLAX
     Route: 048
     Dates: start: 202203

REACTIONS (5)
  - Eye infection staphylococcal [Recovering/Resolving]
  - Muscular weakness [Unknown]
  - Ageusia [Unknown]
  - Decreased appetite [Unknown]
  - Ocular hyperaemia [Unknown]
